FAERS Safety Report 6332881-9 (Version None)
Quarter: 2009Q3

REPORT INFORMATION
  Report Type: 
  Country: None (occurrence: None)
  Receive Date: 20090828
  Receipt Date: 20090821
  Transmission Date: 20100115
  Serious: Yes (Hospitalization)
  Sender: FDA-Public Use
  Company Number: TR-ELI_LILLY_AND_COMPANY-TR200908004859

PATIENT
  Age: 61 Year
  Sex: Female

DRUGS (2)
  1. HUMALOG MIX 75/25 [Suspect]
     Indication: DIABETES MELLITUS
     Dosage: 20 IU, DAILY (1/D)
     Route: 058
     Dates: start: 20070101
  2. BEMIKS [Concomitant]
     Dosage: UNK UNK, 2/D
     Route: 048
     Dates: start: 20090601

REACTIONS (4)
  - BLOOD GLUCOSE INCREASED [None]
  - HOSPITALISATION [None]
  - HYPOAESTHESIA [None]
  - WOUND [None]
